FAERS Safety Report 9222581 (Version 2)
Quarter: 2013Q3

REPORT INFORMATION
  Report Type: Spontaneous
  Country: US (occurrence: US)
  Receive Date: 20120914
  Receipt Date: 20130916
  Transmission Date: 20140515
  Serious: Yes (Hospitalization, Other)
  Sender: FDA-Public Use
  Company Number: JPI-P-013071

PATIENT
  Age: 22 Year
  Sex: Male
  Weight: 74.84 kg

DRUGS (8)
  1. XYREM [Suspect]
     Indication: NARCOLEPSY
     Dosage: (UP TO 22 GRAMS DAILY),ORAL
     Route: 048
     Dates: start: 20081013, end: 201011
  2. FLUOXETINE HYDROCHLORIDE [Suspect]
     Indication: ANXIETY
     Dates: start: 2008, end: 20101130
  3. ARMODAFINIL [Concomitant]
  4. GABAPENTIN [Concomitant]
  5. ALPRAZOLAM [Suspect]
     Indication: ANXIETY
     Dates: start: 2008
  6. CLONAZEPAM [Suspect]
     Indication: ANXIETY
  7. AMPHETAMINE SULFATE\DEXTROAMPHETAMINE [Suspect]
     Indication: NARCOLEPSY
     Dosage: 60 MG (30 MG,2 IN 1 D)
     Dates: start: 201010, end: 20101130
  8. CLONIDINE [Concomitant]

REACTIONS (25)
  - Drug abuse [None]
  - Intentional overdose [None]
  - Gun shot wound [None]
  - Abnormal behaviour [None]
  - Road traffic accident [None]
  - Anxiety [None]
  - Condition aggravated [None]
  - Joint dislocation [None]
  - Depression [None]
  - Loss of consciousness [None]
  - Hunger [None]
  - Blood pressure increased [None]
  - Weight decreased [None]
  - Insomnia [None]
  - Tremor [None]
  - Vomiting [None]
  - Somnambulism [None]
  - Fall [None]
  - Intentional self-injury [None]
  - Thermal burn [None]
  - Insomnia [None]
  - Drug withdrawal syndrome [None]
  - Heart rate increased [None]
  - Drug interaction [None]
  - Drug dose omission [None]
